FAERS Safety Report 24873102 (Version 1)
Quarter: 2025Q1

REPORT INFORMATION
  Report Type: Spontaneous
  Country: US (occurrence: US)
  Receive Date: 20250122
  Receipt Date: 20250122
  Transmission Date: 20250409
  Serious: Yes (Death)
  Sender: AZURITY PHARMACEUTICALS
  Company Number: US-AZURITY PHARMACEUTICALS, INC.-AZR202501-000252

PATIENT
  Age: 31 Year
  Sex: Female

DRUGS (6)
  1. AMPHETAMINE SULFATE [Suspect]
     Active Substance: AMPHETAMINE SULFATE
     Indication: Product used for unknown indication
  2. CARBON MONOXIDE [Suspect]
     Active Substance: CARBON MONOXIDE
     Indication: Product used for unknown indication
  3. CYANIDE ANION [Suspect]
     Active Substance: CYANIDE ANION
     Indication: Product used for unknown indication
  4. METHAMPHETAMINE [Suspect]
     Active Substance: METHAMPHETAMINE
     Indication: Product used for unknown indication
  5. CANNABIS SATIVA SUBSP. INDICA TOP [Suspect]
     Active Substance: CANNABIS SATIVA SUBSP. INDICA TOP
     Indication: Product used for unknown indication
  6. SODIUM [Suspect]
     Active Substance: SODIUM
     Indication: Product used for unknown indication

REACTIONS (4)
  - Environmental exposure [Fatal]
  - Respiratory arrest [Fatal]
  - Cardiac arrest [Fatal]
  - Death [Fatal]

NARRATIVE: CASE EVENT DATE: 20230101
